FAERS Safety Report 21617891 (Version 1)
Quarter: 2022Q4

REPORT INFORMATION
  Report Type: Spontaneous
  Country: US (occurrence: None)
  Receive Date: 20221119
  Receipt Date: 20221119
  Transmission Date: 20230113
  Serious: No
  Sender: FDA-Public Use
  Company Number: 2022A360484

PATIENT
  Age: 769 Month
  Sex: Male
  Weight: 71.2 kg

DRUGS (1)
  1. FASENRA [Suspect]
     Active Substance: BENRALIZUMAB
     Indication: Asthma
     Dosage: 30 MG EVERY FOUR WEEKS FOR THE FIRST THREE DOSES, FOLLOWED BY ONCE EVERY EIGHT WEEKS30MG/ML EVER...
     Route: 058
     Dates: start: 202208

REACTIONS (3)
  - Injection site bruising [Unknown]
  - Product dose omission issue [Not Recovered/Not Resolved]
  - Device leakage [Unknown]

NARRATIVE: CASE EVENT DATE: 20220801
